FAERS Safety Report 17427865 (Version 2)
Quarter: 2020Q1

REPORT INFORMATION
  Report Type: Spontaneous
  Country: JP (occurrence: JP)
  Receive Date: 20200217
  Receipt Date: 20200309
  Transmission Date: 20200409
  Serious: Yes (Death)
  Sender: FDA-Public Use
  Company Number: JP-ASTRAZENECA-2020SE23792

PATIENT
  Age: 72 Year
  Sex: Female

DRUGS (1)
  1. IMFINZI [Suspect]
     Active Substance: DURVALUMAB
     Indication: NON-SMALL CELL LUNG CANCER
     Route: 041
     Dates: start: 20181004, end: 20181213

REACTIONS (2)
  - Malignant neoplasm progression [Fatal]
  - Radiation pneumonitis [Not Recovered/Not Resolved]

NARRATIVE: CASE EVENT DATE: 20181227
